FAERS Safety Report 5576247-8 (Version None)
Quarter: 2007Q4

REPORT INFORMATION
  Report Type: 
  Country: None (occurrence: None)
  Receive Date: 20071228
  Receipt Date: 20071218
  Transmission Date: 20080405
  Serious: Yes (Other)
  Sender: FDA-Public Use
  Company Number: US-ELI_LILLY_AND_COMPANY-US200709006775

PATIENT
  Age: 66 Year
  Sex: Male

DRUGS (10)
  1. CYMBALTA [Suspect]
     Indication: DEPRESSION
     Dosage: 60 MG, UNK
     Dates: start: 20070923
  2. SOLU-MEDROL [Concomitant]
  3. LOVENOX [Concomitant]
  4. PRIMAXIN [Concomitant]
  5. PROTONIX [Concomitant]
  6. MORPHINE [Concomitant]
  7. ATIVAN [Concomitant]
  8. HALDOL SOLUTAB [Concomitant]
  9. ATROVENT [Concomitant]
  10. ALBUTEROL [Concomitant]

REACTIONS (2)
  - DYSPHAGIA [None]
  - DYSPNOEA [None]
